FAERS Safety Report 9541646 (Version 1)
Quarter: 2013Q2

REPORT INFORMATION
  Report Type: Spontaneous
  Country: US (occurrence: None)
  Receive Date: 20130524
  Receipt Date: 20130524
  Transmission Date: 20140414
  Serious: No
  Sender: FDA-Public Use
  Company Number: PHEH2012US023743

PATIENT
  Age: 51 Year
  Sex: Female

DRUGS (2)
  1. GILENYA (FINGOLIMOD) CAPSULE, 0.5MG [Suspect]
     Indication: MULTIPLE SCLEROSIS
     Route: 048
     Dates: start: 20121129
  2. CARDIZEM (DILTIAZEM HYDROCHLORIDE) [Concomitant]

REACTIONS (6)
  - Hypoaesthesia [None]
  - Fall [None]
  - Muscular weakness [None]
  - Heart rate decreased [None]
  - Hypertension [None]
  - Asthenia [None]
